FAERS Safety Report 4538330-5 (Version None)
Quarter: 2004Q4

REPORT INFORMATION
  Report Type: 
  Country: None (occurrence: None)
  Receive Date: 20041223
  Receipt Date: 20041223
  Transmission Date: 20050328
  Serious: No
  Sender: FDA-Public Use
  Company Number: None

PATIENT
  Age: 48 Year
  Sex: Female

DRUGS (1)
  1. ZICAM [Suspect]

REACTIONS (4)
  - AGEUSIA [None]
  - ANOSMIA [None]
  - IMPAIRED WORK ABILITY [None]
  - NASAL DISCOMFORT [None]
